FAERS Safety Report 4626833-4 (Version None)
Quarter: 2005Q2

REPORT INFORMATION
  Report Type: 
  Country: None (occurrence: None)
  Receive Date: 20050405
  Receipt Date: 20050324
  Transmission Date: 20051028
  Serious: Yes (Other)
  Sender: FDA-Public Use
  Company Number: GB-BRISTOL-MYERS SQUIBB COMPANY-12909669

PATIENT
  Age: 71 Year
  Sex: Female

DRUGS (2)
  1. TRIAMCINOLONE [Suspect]
     Indication: NERVE ROOT COMPRESSION
  2. BUPIVACAINE [Suspect]
     Indication: NERVE ROOT COMPRESSION

REACTIONS (3)
  - PARAPLEGIA [None]
  - SENSORY LOSS [None]
  - SPINAL CORD INFARCTION [None]
